FAERS Safety Report 5377252-7 (Version None)
Quarter: 2007Q3

REPORT INFORMATION
  Report Type: 
  Country: None (occurrence: None)
  Receive Date: 20070703
  Receipt Date: 20070622
  Transmission Date: 20080115
  Serious: Yes (Hospitalization)
  Sender: FDA-Public Use
  Company Number: US-ELI_LILLY_AND_COMPANY-US200705001708

PATIENT
  Sex: Female

DRUGS (9)
  1. FORTEO [Suspect]
     Indication: OSTEOPOROSIS
     Dosage: 20 UG, DAILY (1/D)
     Dates: end: 20070506
  2. ERGOCALCIFEROL [Concomitant]
  3. ZOLOFT [Concomitant]
  4. SYNTHROID [Concomitant]
  5. DYAZIDE [Concomitant]
  6. SILYBUM MARIANUM [Concomitant]
  7. ATENOLOL [Concomitant]
  8. DETROL [Concomitant]
  9. LYRICA [Concomitant]

REACTIONS (5)
  - ANOREXIA [None]
  - DIZZINESS [None]
  - HEADACHE [None]
  - NON-CARDIAC CHEST PAIN [None]
  - PAIN IN EXTREMITY [None]
